FAERS Safety Report 9621647 (Version 3)
Quarter: 2013Q4

REPORT INFORMATION
  Report Type: Spontaneous
  Country: US (occurrence: US)
  Receive Date: 20131015
  Receipt Date: 20131216
  Transmission Date: 20140711
  Serious: Yes (Death, Other)
  Sender: FDA-Public Use
  Company Number: US-PFIZER INC-2013290529

PATIENT
  Age: 61 Year
  Sex: Female
  Weight: 90.7 kg

DRUGS (2)
  1. REVATIO [Suspect]
     Indication: PULMONARY HYPERTENSION
     Dosage: 40 MG (2X20MG), 3X/DAY
     Route: 048
  2. REVATIO [Suspect]
     Indication: PULMONARY FIBROSIS

REACTIONS (2)
  - Cardiac arrest [Fatal]
  - Pulmonary hypertension [Unknown]
